FAERS Safety Report 7619404-9 (Version None)
Quarter: 2011Q3

REPORT INFORMATION
  Report Type: 
  Country: None (occurrence: None)
  Receive Date: 20110719
  Receipt Date: 20090319
  Transmission Date: 20111222
  Serious: No
  Sender: FDA-Public Use
  Company Number: 2009BI008678

PATIENT
  Sex: Female

DRUGS (1)
  1. TYSABRI [Suspect]
     Indication: MULTIPLE SCLEROSIS
     Route: 042
     Dates: start: 20090106, end: 20110321

REACTIONS (7)
  - NASOPHARYNGITIS [None]
  - SENSATION OF HEAVINESS [None]
  - FATIGUE [None]
  - HYPERSOMNIA [None]
  - DYSPNOEA [None]
  - DIARRHOEA [None]
  - INSOMNIA [None]
